FAERS Safety Report 10133410 (Version 1)
Quarter: 2014Q2

REPORT INFORMATION
  Report Type: Spontaneous
  Country: US (occurrence: US)
  Receive Date: 20140428
  Receipt Date: 20140428
  Transmission Date: 20141212
  Serious: Yes (Hospitalization, Other)
  Sender: FDA-Public Use
  Company Number: US-PFIZER INC-2014115797

PATIENT
  Age: 44 Year
  Sex: Male
  Weight: 72.56 kg

DRUGS (1)
  1. LYRICA [Suspect]
     Indication: FIBROMYALGIA
     Dosage: 100 MG, 3X/DAY
     Dates: end: 2012

REACTIONS (5)
  - Fall [Unknown]
  - Muscle rupture [Recovering/Resolving]
  - Rib fracture [Recovering/Resolving]
  - Spinal fracture [Recovering/Resolving]
  - Contusion [Recovering/Resolving]
